FAERS Safety Report 4556724-9 (Version None)
Quarter: 2005Q1

REPORT INFORMATION
  Report Type: 
  Country: None (occurrence: None)
  Receive Date: 20050114
  Receipt Date: 20041230
  Transmission Date: 20050727
  Serious: Yes (Hospitalization)
  Sender: FDA-Public Use
  Company Number: CEL-2004-02243-ROC

PATIENT
  Age: 70 Year
  Sex: Male

DRUGS (4)
  1. ZAROXOLYN [Suspect]
     Indication: HYPERTENSION
  2. LOSARTAN 50/100 (LOSARTAN) [Suspect]
     Dates: end: 20040901
  3. FUROSEMIDE [Suspect]
     Indication: HYPERTENSION
  4. SPIRONOLACTONE [Suspect]
     Indication: HYPERTENSION

REACTIONS (13)
  - ABASIA [None]
  - ANOREXIA [None]
  - ASTHENIA [None]
  - CONDITION AGGRAVATED [None]
  - CONSTIPATION [None]
  - CULTURE URINE POSITIVE [None]
  - DRUG RESISTANCE [None]
  - HYPOKALAEMIA [None]
  - HYPONATRAEMIA [None]
  - PNEUMONIA [None]
  - PSEUDOMONAS INFECTION [None]
  - SPUTUM CULTURE POSITIVE [None]
  - WEIGHT DECREASED [None]
